FAERS Safety Report 23438239 (Version 1)
Quarter: 2024Q1

REPORT INFORMATION
  Report Type: Spontaneous
  Country: CN (occurrence: CN)
  Receive Date: 20240124
  Receipt Date: 20240124
  Transmission Date: 20240410
  Serious: Yes (Life-Threatening)
  Sender: FDA-Public Use
  Company Number: CN-BAYER-2024A013597

PATIENT
  Age: 53 Year
  Sex: Male
  Weight: 72 kg

DRUGS (3)
  1. ULTRAVIST [Suspect]
     Active Substance: IOPROMIDE
     Indication: Arteriogram carotid
     Dosage: 50 ML, ONCE
     Route: 040
     Dates: start: 20231229, end: 20231229
  2. ULTRAVIST [Suspect]
     Active Substance: IOPROMIDE
     Indication: Angiogram cerebral
  3. ULTRAVIST [Suspect]
     Active Substance: IOPROMIDE
     Indication: Dizziness

REACTIONS (4)
  - Contrast media allergy [Recovering/Resolving]
  - Rash maculo-papular [Recovering/Resolving]
  - Laryngeal discomfort [Recovering/Resolving]
  - Asthenia [None]

NARRATIVE: CASE EVENT DATE: 20231229
